FAERS Safety Report 14217832 (Version 5)
Quarter: 2018Q2

REPORT INFORMATION
  Report Type: Report from Study
  Country: US (occurrence: US)
  Receive Date: 20171123
  Receipt Date: 20180523
  Transmission Date: 20180711
  Serious: Yes (Hospitalization, Other)
  Sender: FDA-Public Use
  Company Number: US-BRISTOL-MYERS SQUIBB COMPANY-BMS-2017-104853

PATIENT
  Age: 60 Year
  Sex: Male
  Weight: 90.8 kg

DRUGS (2)
  1. IPILIMUMAB [Suspect]
     Active Substance: IPILIMUMAB
     Indication: METASTATIC MALIGNANT MELANOMA
     Dosage: 908 MG, UNK
     Route: 042
  2. IPILIMUMAB [Suspect]
     Active Substance: IPILIMUMAB
     Indication: PRODUCT USED FOR UNKNOWN INDICATION
     Dosage: 10 MG/KG, Q3WK
     Route: 042
     Dates: start: 20170725, end: 20170914

REACTIONS (7)
  - Headache [Unknown]
  - Rash [Unknown]
  - Hypophysitis [Not Recovered/Not Resolved]
  - Skin exfoliation [Unknown]
  - Nausea [Unknown]
  - Prescribed overdose [Unknown]
  - Pituitary enlargement [Unknown]

NARRATIVE: CASE EVENT DATE: 20171001
